FAERS Safety Report 7930723-9 (Version None)
Quarter: 2011Q4

REPORT INFORMATION
  Report Type: 
  Country: None (occurrence: None)
  Receive Date: 20111121
  Receipt Date: 20111110
  Transmission Date: 20120403
  Serious: Yes (Other)
  Sender: FDA-Public Use
  Company Number: US-GLAXOSMITHKLINE-A0749328A

PATIENT
  Age: 64 Year
  Sex: Female
  Weight: 136.4 kg

DRUGS (9)
  1. METOPROLOL TARTRATE [Concomitant]
  2. HYDROCHLOROTHIAZIDE [Concomitant]
  3. KETOPROFEN [Concomitant]
  4. TRAZODONE HCL [Concomitant]
  5. LOTENSIN [Concomitant]
  6. RANITIDINE [Concomitant]
  7. NORVASC [Concomitant]
  8. AVANDIA [Suspect]
     Indication: DIABETES MELLITUS
     Dosage: 8MG PER DAY
     Route: 048
     Dates: start: 20000101, end: 20060816
  9. ZOCOR [Concomitant]

REACTIONS (2)
  - ATRIAL FIBRILLATION [None]
  - CARDIAC FAILURE CONGESTIVE [None]
